FAERS Safety Report 4385305-5 (Version None)
Quarter: 2004Q2

REPORT INFORMATION
  Report Type: 
  Country: None (occurrence: None)
  Receive Date: 20040624
  Receipt Date: 20040624
  Transmission Date: 20050107
  Serious: Yes (Hospitalization, Disabling)
  Sender: FDA-Public Use
  Company Number: None

PATIENT
  Age: 30 Year
  Sex: Female
  Weight: 61.2356 kg

DRUGS (1)
  1. PREDNISONE 20/5MG [Suspect]
     Dosage: 40-2.5 MG DAILY ORAL
     Route: 048
     Dates: start: 20030507, end: 20040220

REACTIONS (1)
  - ASEPTIC NECROSIS BONE [None]
